FAERS Safety Report 12410196 (Version 1)
Quarter: 2016Q2

REPORT INFORMATION
  Report Type: Spontaneous
  Country: US (occurrence: None)
  Receive Date: 20160526
  Receipt Date: 20160526
  Transmission Date: 20160815
  Serious: No
  Sender: FDA-Public Use
  Company Number: None

PATIENT
  Age: 28 Year
  Sex: Female
  Weight: 47.63 kg

DRUGS (13)
  1. PANTOPRAZOLE [Concomitant]
     Active Substance: PANTOPRAZOLE SODIUM
  2. IBUPROFEN. [Concomitant]
     Active Substance: IBUPROFEN
  3. RESTORIL [Suspect]
     Active Substance: TEMAZEPAM
     Indication: SLEEP DISORDER
     Dosage: 1 CAPSULE(S) TAKEN BY MOUTH
     Route: 048
  4. BACLOFEN. [Concomitant]
     Active Substance: BACLOFEN
  5. GABAPENTIN. [Concomitant]
     Active Substance: GABAPENTIN
  6. MAGIC BULLET SUPPOSITORY [Concomitant]
  7. YAZ [Concomitant]
     Active Substance: DROSPIRENONE\ETHINYL ESTRADIOL
  8. RESTORIL [Concomitant]
     Active Substance: TEMAZEPAM
  9. RESTORIL [Suspect]
     Active Substance: TEMAZEPAM
     Indication: INITIAL INSOMNIA
     Dosage: 1 CAPSULE(S) TAKEN BY MOUTH
     Route: 048
  10. CONCERTA [Concomitant]
     Active Substance: METHYLPHENIDATE HYDROCHLORIDE
  11. ATIVAN [Concomitant]
     Active Substance: LORAZEPAM
  12. ZOLOFT [Concomitant]
     Active Substance: SERTRALINE HYDROCHLORIDE
  13. FOCALIN [Concomitant]
     Active Substance: DEXMETHYLPHENIDATE HYDROCHLORIDE

REACTIONS (4)
  - Somnolence [None]
  - Hyperhidrosis [None]
  - Nightmare [None]
  - Palpitations [None]
